FAERS Safety Report 8557507 (Version 8)
Quarter: 2013Q2

REPORT INFORMATION
  Report Type: Spontaneous
  Country: JP (occurrence: JP)
  Receive Date: 20120511
  Receipt Date: 20130610
  Transmission Date: 20140414
  Serious: Yes (Hospitalization, Other)
  Sender: FDA-Public Use
  Company Number: JP-JNJFOC-20120507216

PATIENT
  Age: 15 Year
  Sex: Female
  Weight: 44 kg

DRUGS (4)
  1. REMICADE [Suspect]
     Indication: CROHN^S DISEASE
     Dosage: 14TH DOSE
     Route: 042
     Dates: start: 20120404
  2. REMICADE [Suspect]
     Indication: CROHN^S DISEASE
     Dosage: FIRST DOSE
     Route: 042
     Dates: start: 20100721
  3. REMICADE [Suspect]
     Indication: CROHN^S DISEASE
     Dosage: FIRST DOSE
     Route: 042
     Dates: start: 201008
  4. PENTASA [Concomitant]
     Route: 048

REACTIONS (3)
  - Axonal neuropathy [Recovering/Resolving]
  - Neuropathy peripheral [Unknown]
  - Monoplegia [Unknown]
